FAERS Safety Report 17064889 (Version 1)
Quarter: 2019Q4

REPORT INFORMATION
  Report Type: Spontaneous
  Country: CZ (occurrence: CZ)
  Receive Date: 20191122
  Receipt Date: 20191122
  Transmission Date: 20200122
  Serious: Yes (Death, Life-Threatening, Hospitalization, Disabling, Other)
  Sender: FDA-Public Use
  Company Number: CZ-SA-2019SA322874

PATIENT
  Age: 59 Year
  Sex: Female
  Weight: 65 kg

DRUGS (4)
  1. IRINOTECAN HYDROCHLORIDE TRIHYDRATE [IRINOTECAN HYDROCHLORIDE] [Concomitant]
     Active Substance: IRINOTECAN HYDROCHLORIDE
     Indication: CHEMOTHERAPY
     Dosage: 300 MG, QOW
     Route: 042
     Dates: start: 20190715, end: 20191023
  2. FLUOROURACIL. [Concomitant]
     Active Substance: FLUOROURACIL
     Indication: CHEMOTHERAPY
     Dosage: 5368 MG, UNK, MFOLFOX FROM 5.12.2018, THEN FROM 15.7.2019 AFLIBERCEPT+FOLFIRI
     Route: 042
     Dates: start: 20181205, end: 20191024
  3. ZALTRAP [Suspect]
     Active Substance: ZIV-AFLIBERCEPT
     Indication: CHEMOTHERAPY
     Dosage: 320 MG, QOW
     Route: 042
     Dates: start: 20190715, end: 20191023
  4. CALCIUM FOLINATE [Concomitant]
     Active Substance: LEUCOVORIN CALCIUM
     Indication: CHEMOTHERAPY
     Dosage: UNK UNK, UNK
     Route: 065
     Dates: start: 20181205, end: 20191024

REACTIONS (3)
  - Ileus [Unknown]
  - Febrile neutropenia [Fatal]
  - Septic shock [Fatal]

NARRATIVE: CASE EVENT DATE: 20191102
